FAERS Safety Report 7771802-9 (Version None)
Quarter: 2011Q3

REPORT INFORMATION
  Report Type: 
  Country: None (occurrence: None)
  Receive Date: 20110922
  Receipt Date: 20110913
  Transmission Date: 20111222
  Serious: Yes (Other)
  Sender: FDA-Public Use
  Company Number: US-ELI_LILLY_AND_COMPANY-US201109004025

PATIENT
  Age: 75 Year
  Sex: Male

DRUGS (2)
  1. HUMALOG [Suspect]
     Indication: DIABETES MELLITUS
     Dosage: 7 U, UNK
     Dates: start: 20070101
  2. LANTUS [Concomitant]
     Dosage: UNK

REACTIONS (2)
  - HAEMATOLOGICAL MALIGNANCY [None]
  - HEADACHE [None]
